FAERS Safety Report 23405134 (Version 1)
Quarter: 2024Q1

REPORT INFORMATION
  Report Type: Report from Study
  Country: CA (occurrence: CA)
  Receive Date: 20240116
  Receipt Date: 20240116
  Transmission Date: 20240410
  Serious: Yes (Death)
  Sender: FDA-Public Use
  Company Number: CA-BAYER-2024A006258

PATIENT
  Sex: Male

DRUGS (2)
  1. EYLEA [Suspect]
     Active Substance: AFLIBERCEPT
     Indication: Age-related macular degeneration
     Dosage: INJECTED, ONCE, SOLUTION FOR INJECTION, 40 MG/ML
     Dates: start: 20210824, end: 20210824
  2. EYLEA [Suspect]
     Active Substance: AFLIBERCEPT
     Dosage: INJECTED, ONCE, SOLUTION FOR INJECTION, 40 MG/ML
     Dates: start: 20230810, end: 20230810

REACTIONS (1)
  - Death [Fatal]

NARRATIVE: CASE EVENT DATE: 20231222
